FAERS Safety Report 16859850 (Version 1)
Quarter: 2019Q4

REPORT INFORMATION
  Report Type: Spontaneous
  Country: US (occurrence: US)
  Receive Date: 20190927
  Receipt Date: 20190927
  Transmission Date: 20200122
  Serious: No
  Sender: FDA-Public Use
  Company Number: None

PATIENT
  Age: 54 Year
  Sex: Female
  Weight: 58.5 kg

DRUGS (1)
  1. LORAZEPAM. [Suspect]
     Active Substance: LORAZEPAM
     Dates: start: 20170701, end: 20190914

REACTIONS (3)
  - Oral discomfort [None]
  - Stomatitis [None]
  - Oral pain [None]

NARRATIVE: CASE EVENT DATE: 20180901
